FAERS Safety Report 5078909-8 (Version None)
Quarter: 2006Q3

REPORT INFORMATION
  Report Type: 
  Country: None (occurrence: None)
  Receive Date: 20060814
  Receipt Date: 20060723
  Transmission Date: 20061208
  Serious: Yes (Hospitalization)
  Sender: FDA-Public Use
  Company Number: US-AMGEN-US187449

PATIENT
  Sex: Female

DRUGS (2)
  1. ENBREL [Suspect]
     Indication: RHEUMATOID ARTHRITIS
     Route: 058
     Dates: start: 20000601
  2. METHOTREXATE [Concomitant]
     Route: 065
     Dates: start: 20000101

REACTIONS (3)
  - ABDOMINAL HERNIA [None]
  - INJECTION SITE PAIN [None]
  - TOOTH EXTRACTION [None]
